FAERS Safety Report 19226648 (Version 3)
Quarter: 2021Q2

REPORT INFORMATION
  Report Type: Report from Study
  Country: FR (occurrence: FR)
  Receive Date: 20210506
  Receipt Date: 20210623
  Transmission Date: 20210717
  Serious: Yes (Hospitalization)
  Sender: FDA-Public Use
  Company Number: FR-ROCHE-2766903

PATIENT
  Age: 81 Year
  Sex: Male

DRUGS (9)
  1. FLUTICASONE FUROATE;UMECLIDINIUM BROMIDE;VILANTEROL TRIFENATATE [Concomitant]
     Active Substance: FLUTICASONE FUROATE\UMECLIDINIUM BROMIDE\VILANTEROL TRIFENATATE
  2. ATEZOLIZUMAB. [Suspect]
     Active Substance: ATEZOLIZUMAB
     Indication: NON-SMALL CELL LUNG CANCER
     Dosage: DATE OF LAST DOSE OF ATEZOLIZUMAB PRIOR TO ADVERSE EVENT: 21/JAN/2021?DATE AND TIME OF LAST ADMINIST
     Route: 042
     Dates: start: 20201015
  3. CETIRIZINE [Concomitant]
     Active Substance: CETIRIZINE HYDROCHLORIDE
  4. AMLODIPINE [Concomitant]
     Active Substance: AMLODIPINE BESYLATE
  5. PACLITAXEL. [Suspect]
     Active Substance: PACLITAXEL
     Indication: NON-SMALL CELL LUNG CANCER
     Dosage: DATE OF LAST DOSE OF PACLITAXEL PRIOR TO ADVERSE EVENT: 21/JAN/2021 (180 MG)??D1, 8, 15, EVERY 4 WEE
     Route: 042
     Dates: start: 20201015
  6. SALBUTAMOL [Concomitant]
     Active Substance: ALBUTEROL
  7. CARBOPLATIN. [Suspect]
     Active Substance: CARBOPLATIN
     Indication: NON-SMALL CELL LUNG CANCER
     Dosage: DATE OF LAST DOSE OF CARBOPLATIN PRIOR TO ADVERSE EVENT: 21/JAN/2021?DATE AND TIME OF LAST ADMINISTR
     Route: 042
     Dates: start: 20201015
  8. PERINDOPRIL [Concomitant]
     Active Substance: PERINDOPRIL
  9. PERINDOPRIL TERT?BUTYLAMINE [Concomitant]
     Active Substance: PERINDOPRIL ERBUMINE

REACTIONS (2)
  - Drug eruption [Recovered/Resolved]
  - Pruritus [Recovered/Resolved]

NARRATIVE: CASE EVENT DATE: 20210127
